FAERS Safety Report 5093798-3 (Version None)
Quarter: 2006Q3

REPORT INFORMATION
  Report Type: 
  Country: None (occurrence: None)
  Receive Date: 20060831
  Receipt Date: 20060821
  Transmission Date: 20061208
  Serious: Yes (Other)
  Sender: FDA-Public Use
  Company Number: GB-JNJFOC-20060805172

PATIENT
  Sex: Female

DRUGS (1)
  1. DURAGESIC-50 [Suspect]
     Indication: DRUG USE FOR UNKNOWN INDICATION
     Route: 062

REACTIONS (4)
  - ANGINA PECTORIS [None]
  - HEART RATE INCREASED [None]
  - PARAESTHESIA [None]
  - THROAT TIGHTNESS [None]
